FAERS Safety Report 13652161 (Version 1)
Quarter: 2017Q2

REPORT INFORMATION
  Report Type: Report from Study
  Country: AT (occurrence: AT)
  Receive Date: 20170614
  Receipt Date: 20170614
  Transmission Date: 20170830
  Serious: Yes (Hospitalization)
  Sender: FDA-Public Use
  Company Number: AT-AMGEN-AUTCT2014024695

PATIENT
  Age: 66 Year
  Sex: Female
  Weight: 93 kg

DRUGS (13)
  1. LAMOTRIGIN [Concomitant]
     Active Substance: LAMOTRIGINE
     Dosage: 25 MG, UNK
     Route: 048
     Dates: start: 2012
  2. SPIRIVA [Concomitant]
     Active Substance: TIOTROPIUM BROMIDE MONOHYDRATE
     Dosage: 2.5 MUG, UNK
     Route: 055
     Dates: start: 2012
  3. AMG 386 [Suspect]
     Active Substance: TREBANANIB
     Indication: OVARIAN CANCER
     Dosage: UNK
     Route: 041
     Dates: start: 20130312, end: 20140211
  4. LOVENOX [Concomitant]
     Active Substance: ENOXAPARIN SODIUM
     Dosage: 40 MG, UNK
     Route: 058
     Dates: start: 20130312
  5. SELOKEN PLUS [Concomitant]
     Dosage: 1 UNK, UNK
     Route: 048
     Dates: start: 2008
  6. VITAMINS WITH MINERALS [Concomitant]
     Active Substance: MINERALS\VITAMINS
     Dosage: 1 UNK, UNK
     Route: 048
     Dates: start: 20111210
  7. ALLOPURINOL GENERICON [Concomitant]
     Dosage: 300 MG, UNK
     Route: 048
     Dates: start: 2012
  8. AQUAPHORIL [Concomitant]
     Active Substance: XIPAMIDE
     Dosage: 1 UNK, QD
     Route: 048
     Dates: start: 20140310
  9. MICARDIS PLUS [Concomitant]
     Active Substance: HYDROCHLOROTHIAZIDE\TELMISARTAN
     Dosage: 5 MG, UNK
     Route: 048
     Dates: start: 2008
  10. TEMESTA                            /00273201/ [Concomitant]
     Active Substance: LORAZEPAM
     Dosage: 1 MG, UNK
     Route: 048
     Dates: start: 20130826
  11. KALIORAL                           /00252502/ [Concomitant]
     Dosage: 1 UNK, UNK
     Route: 048
     Dates: start: 20131107
  12. MAGNOSOLV [Concomitant]
     Dosage: 1 UNK, UNK
     Route: 048
     Dates: start: 20131119
  13. EUTHYROX [Concomitant]
     Active Substance: LEVOTHYROXINE SODIUM
     Dosage: 75 MUG, UNK
     Route: 048
     Dates: start: 2010

REACTIONS (1)
  - Pleural effusion [Not Recovered/Not Resolved]

NARRATIVE: CASE EVENT DATE: 20140318
